FAERS Safety Report 11074276 (Version 1)
Quarter: 2015Q2

REPORT INFORMATION
  Report Type: Report from Study
  Country: NL (occurrence: NL)
  Receive Date: 20150429
  Receipt Date: 20150429
  Transmission Date: 20150821
  Serious: Yes (Hospitalization)
  Sender: FDA-Public Use
  Company Number: NL-B.I. PHARMACEUTICALS,INC./RIDGEFIELD-2015-BI-20886BI

PATIENT
  Age: 76 Year
  Sex: Male
  Weight: 68 kg

DRUGS (14)
  1. FLUCONAZOLE. [Concomitant]
     Active Substance: FLUCONAZOLE
     Indication: INFECTION PROPHYLAXIS
     Dosage: 50 MG
     Route: 048
     Dates: start: 20130729
  2. METOPROLOL [Concomitant]
     Active Substance: METOPROLOL
     Indication: ANGINA PECTORIS
     Dosage: 50 MG
     Route: 048
     Dates: start: 20140205
  3. SIMVASTATIN. [Concomitant]
     Active Substance: SIMVASTATIN
     Indication: ANGINA PECTORIS
     Dosage: 40 MG
     Route: 048
     Dates: start: 20140205
  4. CYTARABINE. [Suspect]
     Active Substance: CYTARABINE
     Indication: ACUTE MYELOID LEUKAEMIA
     Dosage: 40 MG
     Route: 042
     Dates: start: 20150316, end: 20150326
  5. TAVEGIL [Concomitant]
     Active Substance: CLEMASTINE FUMARATE
     Indication: ALLERGY PROPHYLAXIS
     Dosage: 2 MG
     Route: 042
     Dates: start: 20131010
  6. PREDNISONE. [Concomitant]
     Active Substance: PREDNISONE
     Indication: POLYMYALGIA RHEUMATICA
     Dosage: 2.5 MG
     Route: 048
  7. VOLASERTIB [Suspect]
     Active Substance: VOLASERTIB
     Dosage: 350 MG
     Route: 042
     Dates: start: 20150330, end: 20150330
  8. FOSAVANCE [Concomitant]
     Active Substance: ALENDRONATE SODIUM\CHOLECALCIFEROL
     Indication: OSTEOPOROSIS PROPHYLAXIS
     Dosage: DOSE PER APPLICATION AND DAILY DOSE: 70MG/70MCG PER WEEK
     Route: 048
  9. PANTOZOL [Concomitant]
     Active Substance: PANTOPRAZOLE SODIUM
     Indication: PROPHYLAXIS
     Dosage: 40 MG
     Route: 048
  10. METAMUCIL [Concomitant]
     Active Substance: PLANTAGO SEED
     Indication: CONSTIPATION PROPHYLAXIS
     Dosage: 1 U
     Route: 048
     Dates: start: 20140305
  11. VOLASERTIB [Suspect]
     Active Substance: VOLASERTIB
     Indication: ACUTE MYELOID LEUKAEMIA
     Dosage: 350 MG
     Route: 042
     Dates: start: 20150316, end: 20150316
  12. HYDROCORTISONE. [Concomitant]
     Active Substance: HYDROCORTISONE
     Indication: PROPHYLAXIS
     Dosage: 50 MG
     Route: 042
     Dates: start: 20131024
  13. TEMAZEPAM. [Concomitant]
     Active Substance: TEMAZEPAM
     Indication: PROPHYLAXIS
     Dosage: DAILY DOSE: 10MG PRN
     Route: 048
     Dates: start: 20131118
  14. ASCAL [Concomitant]
     Active Substance: CARBASALATE
     Indication: ANGINA PECTORIS
     Dosage: 80 MG
     Route: 048
     Dates: start: 20140205

REACTIONS (2)
  - Dehydration [Not Recovered/Not Resolved]
  - Lung infection [Not Recovered/Not Resolved]

NARRATIVE: CASE EVENT DATE: 20150415
